FAERS Safety Report 4741274-7 (Version None)
Quarter: 2005Q3

REPORT INFORMATION
  Report Type: 
  Country: None (occurrence: None)
  Receive Date: 20050810
  Receipt Date: 20041222
  Transmission Date: 20060218
  Serious: No
  Sender: FDA-Public Use
  Company Number: US-GLAXOSMITHKLINE-A0538288A

PATIENT
  Age: 56 Year
  Sex: Male

DRUGS (4)
  1. PAXIL [Suspect]
     Indication: DEPRESSION
     Dosage: 40MG PER DAY
     Route: 048
  2. SINEMET CR [Concomitant]
  3. REMERON [Concomitant]
  4. SYNTHROID [Concomitant]

REACTIONS (5)
  - DISORIENTATION [None]
  - NAUSEA [None]
  - PARAESTHESIA [None]
  - PILOERECTION [None]
  - TEMPERATURE INTOLERANCE [None]
